FAERS Safety Report 10643543 (Version 8)
Quarter: 2015Q2

REPORT INFORMATION
  Report Type: Spontaneous
  Country: US (occurrence: US)
  Receive Date: 20141210
  Receipt Date: 20150417
  Transmission Date: 20150821
  Serious: Yes (Hospitalization, Other)
  Sender: FDA-Public Use
  Company Number: US-UNITED THERAPEUTICS-UNT-2014-010928

PATIENT
  Age: 55 Year
  Sex: Female
  Weight: 71.66 kg

DRUGS (5)
  1. ADEMPAS [Concomitant]
     Active Substance: RIOCIGUAT
     Indication: PRODUCT USED FOR UNKNOWN INDICATION
  2. REMODULIN [Suspect]
     Active Substance: TREPROSTINIL
     Indication: PULMONARY HYPERTENSION
     Dosage: 0.024 ?G/KG, CONTINUING
     Route: 058
     Dates: start: 20131211
  3. REMODULIN [Suspect]
     Active Substance: TREPROSTINIL
     Dosage: 0.020 ?G/KG, CONTINUING
     Route: 058
  4. REMODULIN [Suspect]
     Active Substance: TREPROSTINIL
     Dosage: 0.041 ?G/KG, CONTINUING
     Route: 058
  5. REMODULIN [Suspect]
     Active Substance: TREPROSTINIL
     Indication: PULMONARY ARTERIAL HYPERTENSION
     Dosage: 0.020 ?G/KG, CONTINUING
     Route: 058
     Dates: start: 20131202

REACTIONS (23)
  - Fall [Unknown]
  - Blood pressure fluctuation [Unknown]
  - Infusion site induration [Unknown]
  - Device related infection [Unknown]
  - Feeling abnormal [Unknown]
  - Infusion site nodule [Unknown]
  - Dizziness [Unknown]
  - Infusion site erythema [Unknown]
  - Urosepsis [Unknown]
  - Infusion site pain [Unknown]
  - Infusion site oedema [Unknown]
  - Infusion site infection [Unknown]
  - Hypotension [Unknown]
  - Vomiting [Unknown]
  - Dyspnoea [Unknown]
  - Oedema peripheral [Unknown]
  - Fatigue [Unknown]
  - Staphylococcal infection [Unknown]
  - Infusion site warmth [Unknown]
  - Cardiac disorder [Unknown]
  - Device dislocation [Unknown]
  - Drug dose omission [Unknown]
  - Injection site discharge [Unknown]

NARRATIVE: CASE EVENT DATE: 2014
